FAERS Safety Report 5808550-8 (Version None)
Quarter: 2008Q3

REPORT INFORMATION
  Report Type: 
  Country: None (occurrence: None)
  Receive Date: 20080702
  Receipt Date: 20080303
  Transmission Date: 20090109
  Serious: Yes (Other)
  Sender: FDA-Public Use
  Company Number: US-WYE -H02931808

PATIENT
  Age: 66 Year
  Sex: Male
  Weight: 90.8 kg

DRUGS (5)
  1. ADVIL [Suspect]
     Indication: INSOMNIA
     Dosage: 2 TABLET 1X PER 1 DAY, ORAL
     Route: 048
     Dates: start: 20080301, end: 20080302
  2. ADVIL [Suspect]
     Indication: PAIN
     Dosage: 2 TABLET 1X PER 1 DAY, ORAL
     Route: 048
     Dates: start: 20080301, end: 20080302
  3. METFORMIN HCL [Concomitant]
  4. GLYBURIDE [Concomitant]
  5. ZESTORETIC [Concomitant]

REACTIONS (2)
  - BLOOD GLUCOSE INCREASED [None]
  - CONDITION AGGRAVATED [None]
